FAERS Safety Report 12406435 (Version 7)
Quarter: 2019Q1

REPORT INFORMATION
  Report Type: Spontaneous
  Country: IT (occurrence: IT)
  Receive Date: 20160526
  Receipt Date: 20190207
  Transmission Date: 20190417
  Serious: Yes (Other)
  Sender: FDA-Public Use
  Company Number: IT-JNJFOC-20160516109

PATIENT

DRUGS (1)
  1. IBRUTINIB [Suspect]
     Active Substance: IBRUTINIB
     Indication: CHRONIC LYMPHOCYTIC LEUKAEMIA
     Route: 048

REACTIONS (8)
  - Conjunctival haemorrhage [Unknown]
  - Skin haemorrhage [Unknown]
  - Platelet aggregation abnormal [Recovering/Resolving]
  - Haemorrhage [Unknown]
  - Petechiae [Unknown]
  - Rectal haemorrhage [Unknown]
  - Retinal haemorrhage [Unknown]
  - Contusion [Unknown]
